FAERS Safety Report 7384414-6 (Version None)
Quarter: 2011Q1

REPORT INFORMATION
  Report Type: 
  Country: None (occurrence: None)
  Receive Date: 20110330
  Receipt Date: 20110324
  Transmission Date: 20110831
  Serious: Yes (Other)
  Sender: FDA-Public Use
  Company Number: JP-BRISTOL-MYERS SQUIBB COMPANY-15514698

PATIENT
  Age: 60 Year
  Sex: Male
  Weight: 61 kg

DRUGS (3)
  1. CISPLATIN [Suspect]
     Indication: GASTROOESOPHAGEAL CANCER
     Dosage: LAST INFUSION ON 12JAN2011. ON DAY 1 OF CYCLE
     Route: 042
     Dates: start: 20101014, end: 20110112
  2. XELODA [Suspect]
     Indication: GASTROOESOPHAGEAL CANCER
     Dosage: ON DAY 1-15 TABS.LAST DOSE ON 18JAN2011
     Route: 048
     Dates: start: 20101014, end: 20110118
  3. CETUXIMAB [Suspect]
     Indication: GASTROOESOPHAGEAL CANCER
     Dosage: STRENGTH:5MG/ML.NO OF INFUSIONS:13.LAST INFUSION ON 12JAN2011
     Route: 042
     Dates: start: 20101014, end: 20110112

REACTIONS (1)
  - MYOCARDIAL ISCHAEMIA [None]
